FAERS Safety Report 18857262 (Version 1)
Quarter: 2021Q1

REPORT INFORMATION
  Report Type: Spontaneous
  Country: DE (occurrence: DE)
  Receive Date: 20210208
  Receipt Date: 20210208
  Transmission Date: 20210420
  Serious: Yes (Hospitalization)
  Sender: FDA-Public Use
  Company Number: DE-TEVA-2021-DE-1877435

PATIENT
  Sex: Male

DRUGS (1)
  1. DIAZEPAM 5 MG [Suspect]
     Active Substance: DIAZEPAM
     Route: 065

REACTIONS (3)
  - Myocardial infarction [Unknown]
  - Product availability issue [Unknown]
  - Circulatory collapse [Unknown]
